FAERS Safety Report 5347530-6 (Version None)
Quarter: 2007Q2

REPORT INFORMATION
  Report Type: 
  Country: None (occurrence: None)
  Receive Date: 20070504
  Receipt Date: 20061201
  Transmission Date: 20071010
  Serious: Yes (Other)
  Sender: FDA-Public Use
  Company Number: PHEH2006US13935

PATIENT
  Age: 47 Year
  Sex: Female
  Weight: 123.8 kg

DRUGS (4)
  1. DIOVAN HCT [Suspect]
     Indication: HYPERTENSION
     Dosage: SEE IMAGE
     Dates: start: 19980101, end: 20020101
  2. DIOVAN HCT [Suspect]
     Indication: HYPERTENSION
     Dosage: SEE IMAGE
     Dates: start: 20020101, end: 20061018
  3. CELEBREX [Concomitant]
  4. TOPROL-XL [Concomitant]

REACTIONS (9)
  - ARTHROSCOPY [None]
  - BACK PAIN [None]
  - BLOOD AMYLASE INCREASED [None]
  - GLUCOSE TOLERANCE IMPAIRED [None]
  - JOINT INJURY [None]
  - LIPASE INCREASED [None]
  - MUSCULOSKELETAL CHEST PAIN [None]
  - PANCREATITIS [None]
  - WHITE BLOOD CELL COUNT INCREASED [None]
